FAERS Safety Report 9861141 (Version 2)
Quarter: 2014Q1

REPORT INFORMATION
  Report Type: Spontaneous
  Country: US (occurrence: US)
  Receive Date: 20140202
  Receipt Date: 20140202
  Transmission Date: 20141002
  Serious: No
  Sender: FDA-Public Use
  Company Number: US-ALLERGAN-1303334US

PATIENT
  Age: 56 Year
  Sex: Female

DRUGS (3)
  1. BOTOX [Suspect]
     Indication: MIGRAINE
     Dosage: 200 UNITS, SINGLE
     Route: 030
  2. ALLERGY SHOTS [Concomitant]
     Indication: HYPERSENSITIVITY
  3. ALLEGRA                            /01314201/ [Concomitant]
     Indication: HYPERSENSITIVITY

REACTIONS (10)
  - Off label use [Unknown]
  - Injection site mass [Recovering/Resolving]
  - Influenza like illness [Recovering/Resolving]
  - Pain [Recovering/Resolving]
  - Injection site pain [Recovering/Resolving]
  - Injection site bruising [Recovering/Resolving]
  - Headache [Recovering/Resolving]
  - Neck pain [Recovering/Resolving]
  - Musculoskeletal stiffness [Recovering/Resolving]
  - Therapeutic response unexpected [Unknown]
